FAERS Safety Report 7331674-3 (Version None)
Quarter: 2011Q1

REPORT INFORMATION
  Report Type: 
  Country: None (occurrence: None)
  Receive Date: 20110304
  Receipt Date: 20110210
  Transmission Date: 20110831
  Serious: Yes (Other)
  Sender: FDA-Public Use
  Company Number: US-BAYER-201031090NA

PATIENT
  Sex: Male

DRUGS (11)
  1. PLASMA [Concomitant]
     Indication: AORTIC VALVE REPLACEMENT
  2. TRASYLOL [Suspect]
     Indication: TRICUSPID VALVE REPAIR
  3. HEPARIN [Concomitant]
     Indication: AORTIC VALVE REPLACEMENT
     Dosage: UNK
     Route: 042
     Dates: start: 20041011
  4. ASPIRIN [Concomitant]
     Dosage: 81 MG, UNK
     Route: 048
  5. TRASYLOL [Suspect]
     Indication: AORTIC VALVE REPLACEMENT
     Dosage: 200ML , FOLLOWED BY 50ML /HR; PER PERFUSION RECORD 800 (UNITS NOT
     Dates: start: 20041011, end: 20041011
  6. PLASMA [Concomitant]
     Indication: TRICUSPID VALVE REPAIR
  7. HEPARIN [Concomitant]
     Indication: TRICUSPID VALVE REPAIR
  8. GENTAMICIN [Concomitant]
     Indication: PNEUMOCOCCAL BACTERAEMIA
     Route: 042
  9. RED BLOOD CELLS [Concomitant]
     Indication: AORTIC VALVE REPLACEMENT
     Dosage: 4 UNITS
     Dates: start: 20041011
  10. PENICILLIN G [Concomitant]
     Indication: PNEUMOCOCCAL BACTERAEMIA
     Route: 042
  11. RED BLOOD CELLS [Concomitant]
     Indication: TRICUSPID VALVE REPAIR

REACTIONS (10)
  - UNEVALUABLE EVENT [None]
  - PAIN [None]
  - RENAL IMPAIRMENT [None]
  - EMOTIONAL DISTRESS [None]
  - FEAR [None]
  - RENAL FAILURE [None]
  - ANXIETY [None]
  - RENAL INJURY [None]
  - MULTI-ORGAN FAILURE [None]
  - STRESS [None]
